FAERS Safety Report 12971188 (Version 2)
Quarter: 2016Q4

REPORT INFORMATION
  Report Type: Spontaneous
  Country: US (occurrence: US)
  Receive Date: 20161123
  Receipt Date: 20161128
  Transmission Date: 20170207
  Serious: No
  Sender: FDA-Public Use
  Company Number: US-JAZZ-2016-US-019148

PATIENT
  Age: 49 Year
  Sex: Female
  Weight: 119.73 kg

DRUGS (32)
  1. HUMALOG [Concomitant]
     Active Substance: INSULIN LISPRO
  2. VITAMIN D2 [Concomitant]
     Active Substance: ERGOCALCIFEROL
  3. CELEBREX [Concomitant]
     Active Substance: CELECOXIB
  4. METFORMIN HCL [Concomitant]
     Active Substance: METFORMIN HYDROCHLORIDE
  5. BYSTOLIC [Concomitant]
     Active Substance: NEBIVOLOL HYDROCHLORIDE
  6. SKELAXIN [Concomitant]
     Active Substance: METAXALONE
  7. XYREM [Suspect]
     Active Substance: SODIUM OXYBATE
     Indication: NARCOLEPSY
     Dosage: 2.25 G, BID
     Route: 048
     Dates: start: 20160913, end: 201609
  8. TRAMADOL HCL [Concomitant]
     Active Substance: TRAMADOL HYDROCHLORIDE
  9. TORSEMIDE. [Concomitant]
     Active Substance: TORSEMIDE
  10. PRAVASTATIN SODIUM. [Concomitant]
     Active Substance: PRAVASTATIN SODIUM
  11. LANTUS [Concomitant]
     Active Substance: INSULIN GLARGINE
  12. REQUIP [Concomitant]
     Active Substance: ROPINIROLE HYDROCHLORIDE
  13. FIORICET [Concomitant]
     Active Substance: ACETAMINOPHEN\BUTALBITAL\CAFFEINE
  14. XYREM [Suspect]
     Active Substance: SODIUM OXYBATE
     Dosage: 3.75 G, BID
     Route: 048
     Dates: start: 201609
  15. DEXILANT [Concomitant]
     Active Substance: DEXLANSOPRAZOLE
  16. XOPENEX [Concomitant]
     Active Substance: LEVALBUTEROL HYDROCHLORIDE
  17. XYREM [Suspect]
     Active Substance: SODIUM OXYBATE
     Dosage: 3 G, BID
     Route: 048
     Dates: start: 201609, end: 201609
  18. LINZESS [Concomitant]
     Active Substance: LINACLOTIDE
  19. CYMBALTA [Concomitant]
     Active Substance: DULOXETINE HYDROCHLORIDE
  20. TRILIPIX [Concomitant]
     Active Substance: FENOFIBRIC ACID
  21. ALDACTONE [Concomitant]
     Active Substance: SPIRONOLACTONE
  22. THEO-24 [Concomitant]
     Active Substance: THEOPHYLLINE ANHYDROUS
  23. BUTRANS [Concomitant]
     Active Substance: BUPRENORPHINE
  24. KEPPRA [Concomitant]
     Active Substance: LEVETIRACETAM
  25. SINGULAIR [Concomitant]
     Active Substance: MONTELUKAST SODIUM
  26. RESTASIS [Concomitant]
     Active Substance: CYCLOSPORINE
  27. ALLOPURINOL. [Concomitant]
     Active Substance: ALLOPURINOL
  28. METOLAZONE. [Concomitant]
     Active Substance: METOLAZONE
  29. XOPENEX HFA [Concomitant]
     Active Substance: LEVALBUTEROL TARTRATE
  30. NEURONTIN [Concomitant]
     Active Substance: GABAPENTIN
  31. LOVENOX [Concomitant]
     Active Substance: ENOXAPARIN SODIUM
  32. POTASSIUM CL [Concomitant]
     Active Substance: POTASSIUM CHLORIDE

REACTIONS (5)
  - Headache [Not Recovered/Not Resolved]
  - Gastrooesophageal reflux disease [Not Recovered/Not Resolved]
  - Wrong technique in product usage process [Unknown]
  - Head discomfort [Not Recovered/Not Resolved]
  - Condition aggravated [Not Recovered/Not Resolved]

NARRATIVE: CASE EVENT DATE: 201609
